FAERS Safety Report 4590179-3 (Version None)
Quarter: 2005Q1

REPORT INFORMATION
  Report Type: 
  Country: None (occurrence: None)
  Receive Date: 20050217
  Receipt Date: 20050201
  Transmission Date: 20050727
  Serious: Yes (Death)
  Sender: FDA-Public Use
  Company Number: 207716

PATIENT
  Age: 46 Year
  Sex: Female

DRUGS (5)
  1. AVONEX [Suspect]
     Indication: MULTIPLE SCLEROSIS
     Dosage: 30 UG;QW;IM
     Dates: start: 20040801, end: 20040924
  2. ZOLOFT [Concomitant]
  3. TOPAMAX [Concomitant]
  4. CLONAZEPAM [Concomitant]
  5. XANAX [Concomitant]

REACTIONS (3)
  - DIARRHOEA [None]
  - FEELING ABNORMAL [None]
  - GASTROENTERITIS VIRAL [None]
